FAERS Safety Report 5261389-7 (Version None)
Quarter: 2007Q1

REPORT INFORMATION
  Report Type: 
  Country: None (occurrence: None)
  Receive Date: 20070307
  Receipt Date: 20070219
  Transmission Date: 20070707
  Serious: Yes (Other)
  Sender: FDA-Public Use
  Company Number: 26402

PATIENT
  Age: 55 Year
  Sex: Male
  Weight: 57.6068 kg

DRUGS (11)
  1. NIASPAN [Suspect]
     Indication: HIGH DENSITY LIPOPROTEIN DECREASED
     Dosage: 2000 MG QD PO
     Route: 048
     Dates: start: 20061121, end: 20070215
  2. PIOGLITAZONE [Suspect]
     Indication: METABOLIC SYNDROME
     Dosage: 30 MG DAILY PO
     Route: 048
     Dates: start: 20061128, end: 20070108
  3. NIASPAN [Suspect]
     Indication: HIGH DENSITY LIPOPROTEIN DECREASED
     Dosage: 1000 MG PO
     Route: 048
     Dates: start: 20061107, end: 20061113
  4. NIASPAN [Suspect]
     Indication: HIGH DENSITY LIPOPROTEIN DECREASED
     Dosage: 1500 MG PO
     Route: 048
     Dates: start: 20061114, end: 20061120
  5. PIOGLITAZONE [Suspect]
     Indication: METABOLIC SYNDROME
     Dosage: 45 MG PO
     Route: 048
     Dates: start: 20070106, end: 20070215
  6. ATENOLOL [Concomitant]
  7. SPIRONOLACTONE [Concomitant]
  8. QUINAPRIL [Concomitant]
  9. ASPIRIN [Concomitant]
  10. ATORVASTATIN CALCIUM [Concomitant]
  11. CENTRUM [Concomitant]

REACTIONS (4)
  - FAECAL INCONTINENCE [None]
  - METASTASES TO LIVER [None]
  - RECTAL CANCER METASTATIC [None]
  - RECTAL HAEMORRHAGE [None]
